FAERS Safety Report 11009119 (Version 1)
Quarter: 2015Q2

REPORT INFORMATION
  Report Type: Spontaneous
  Country: PL (occurrence: None)
  Receive Date: 20150408
  Receipt Date: 20150408
  Transmission Date: 20150821
  Serious: Yes (Life-Threatening, Hospitalization)
  Sender: FDA-Public Use
  Company Number: NSR_02029_2015

PATIENT
  Age: 24 Year
  Sex: Male

DRUGS (4)
  1. OPIPRAMOL (OPIPRAMOL) [Suspect]
     Active Substance: OPIPRAMOL
     Indication: PRODUCT USED FOR UNKNOWN INDICATION
     Dosage: DF
  2. UNIDENTIFIABLE SUBSTANCE [Suspect]
     Active Substance: UNSPECIFIED INGREDIENT
     Indication: PRODUCT USED FOR UNKNOWN INDICATION
     Dosage: DF
  3. TRAMADOL (TRAMADOL) [Suspect]
     Active Substance: TRAMADOL
     Indication: PRODUCT USED FOR UNKNOWN INDICATION
     Dosage: DF  INTRAVENOUS (NOT OTHERWISE SPECIFIED)?
  4. CLONAZEPAM (CLONAZEPAM) [Suspect]
     Active Substance: CLONAZEPAM
     Indication: PRODUCT USED FOR UNKNOWN INDICATION
     Dosage: DF

REACTIONS (23)
  - Body temperature fluctuation [None]
  - Hyperhidrosis [None]
  - Weight decreased [None]
  - Agitation [None]
  - Hepatitis C antibody positive [None]
  - Serotonin syndrome [None]
  - Drug dependence [None]
  - Disease recurrence [None]
  - Myalgia [None]
  - Skin lesion [None]
  - Drug abuse [None]
  - Necrosis [None]
  - Alanine aminotransferase increased [None]
  - Subcutaneous abscess [None]
  - Insomnia [None]
  - Skin ulcer [None]
  - Tachycardia [None]
  - Aspartate aminotransferase increased [None]
  - Intentional overdose [None]
  - Incorrect route of drug administration [None]
  - Fatigue [None]
  - Hypersomnia [None]
  - Haemorrhage subcutaneous [None]
